FAERS Safety Report 4592816-6 (Version None)
Quarter: 2005Q1

REPORT INFORMATION
  Report Type: 
  Country: None (occurrence: None)
  Receive Date: 20050228
  Receipt Date: 20050217
  Transmission Date: 20050727
  Serious: Yes (Other)
  Sender: FDA-Public Use
  Company Number: NL-BRISTOL-MYERS SQUIBB COMPANY-12868394

PATIENT
  Age: 58 Year
  Sex: Male

DRUGS (6)
  1. ABILIFY [Suspect]
     Dosage: 15 MG 12-NOV-04 TO 29-NOV-04; 30 MG 29-NOV-04 TO CONT.
     Dates: start: 20041112
  2. PROMETHAZINE [Concomitant]
  3. ARTANE [Concomitant]
  4. BUSPIRONE [Concomitant]
  5. ZOLOFT [Concomitant]
  6. RABEPRAZOLE SODIUM [Concomitant]

REACTIONS (4)
  - DYSKINESIA [None]
  - GLOSSITIS [None]
  - SWOLLEN TONGUE [None]
  - TONGUE DISORDER [None]
